FAERS Safety Report 7693557-9 (Version None)
Quarter: 2011Q3

REPORT INFORMATION
  Report Type: 
  Country: None (occurrence: None)
  Receive Date: 20110819
  Receipt Date: 20110808
  Transmission Date: 20111222
  Serious: Yes (Hospitalization, Other)
  Sender: FDA-Public Use
  Company Number: US-AMGEN-USASP2011040279

PATIENT
  Age: 71 Year
  Sex: Female

DRUGS (2)
  1. ENBREL [Suspect]
     Indication: RHEUMATOID ARTHRITIS
     Dosage: 50 MG, QWK
     Dates: start: 19980101
  2. ENBREL [Suspect]
     Indication: PSORIASIS

REACTIONS (15)
  - JOINT DESTRUCTION [None]
  - MEMORY IMPAIRMENT [None]
  - THROAT TIGHTNESS [None]
  - ATRIAL FIBRILLATION [None]
  - HEADACHE [None]
  - LOCALISED INFECTION [None]
  - VISUAL IMPAIRMENT [None]
  - STRESS [None]
  - FATIGUE [None]
  - ARTERIOVENOUS MALFORMATION [None]
  - DIVERTICULUM [None]
  - IRRITABLE BOWEL SYNDROME [None]
  - FEELING HOT [None]
  - DERMATITIS CONTACT [None]
  - CONVULSION [None]
